FAERS Safety Report 18193232 (Version 2)
Quarter: 2020Q3

REPORT INFORMATION
  Report Type: Spontaneous
  Country: US (occurrence: US)
  Receive Date: 20200825
  Receipt Date: 20200904
  Transmission Date: 20201103
  Serious: Yes (Other)
  Sender: FDA-Public Use
  Company Number: US-PFIZER INC-2020326562

PATIENT
  Age: 70 Year
  Sex: Female
  Weight: 70.3 kg

DRUGS (8)
  1. PANTOPRAZOLE [Suspect]
     Active Substance: PANTOPRAZOLE
     Dosage: 40 MG, 2X/DAY
     Dates: start: 20200803
  2. TYVASO [Interacting]
     Active Substance: TREPROSTINIL
     Indication: PULMONARY ARTERIAL HYPERTENSION
     Dosage: UNK
     Route: 055
     Dates: start: 20111110
  3. TYVASO [Interacting]
     Active Substance: TREPROSTINIL
     Dosage: 4X/DAY (18?54UG (3?9 BREATHS), QID)
     Route: 055
  4. SILDENAFIL CITRATE. [Concomitant]
     Active Substance: SILDENAFIL CITRATE
     Dosage: UNK
  5. ADCIRCA [Concomitant]
     Active Substance: TADALAFIL
     Dosage: UNK
  6. TYVASO [Interacting]
     Active Substance: TREPROSTINIL
     Dosage: UNK
     Route: 055
  7. CELLCEPT [Interacting]
     Active Substance: MYCOPHENOLATE MOFETIL\MYCOPHENOLATE MOFETIL HYDROCHLORIDE
     Dosage: UNK
  8. OFEV [Concomitant]
     Active Substance: NINTEDANIB
     Dosage: UNK

REACTIONS (4)
  - Loss of consciousness [Unknown]
  - Lactose intolerance [Unknown]
  - Dehydration [Unknown]
  - Drug interaction [Unknown]

NARRATIVE: CASE EVENT DATE: 202008
